FAERS Safety Report 22130485 (Version 15)
Quarter: 2025Q3

REPORT INFORMATION
  Report Type: Spontaneous
  Country: US (occurrence: US)
  Receive Date: 20230323
  Receipt Date: 20250717
  Transmission Date: 20251021
  Serious: Yes (Other)
  Sender: PFIZER
  Company Number: US-PFIZER INC-PV202300054165

PATIENT
  Age: 52 Year
  Sex: Female

DRUGS (28)
  1. IBRANCE [Suspect]
     Active Substance: PALBOCICLIB
     Indication: Breast cancer female
     Route: 048
     Dates: start: 20230328
  2. IBRANCE [Suspect]
     Active Substance: PALBOCICLIB
     Route: 048
     Dates: start: 20230328
  3. IBRANCE [Suspect]
     Active Substance: PALBOCICLIB
     Route: 048
     Dates: start: 20230602
  4. IBRANCE [Suspect]
     Active Substance: PALBOCICLIB
     Route: 048
     Dates: start: 20230602
  5. IBRANCE [Suspect]
     Active Substance: PALBOCICLIB
     Route: 048
     Dates: start: 20230602
  6. ALBUTEROL SULFATE [Concomitant]
     Active Substance: ALBUTEROL SULFATE
  7. AMOXICILLIN\CLAVULANATE POTASSIUM [Concomitant]
     Active Substance: AMOXICILLIN\CLAVULANATE POTASSIUM
  8. ANASTROZOLE [Concomitant]
     Active Substance: ANASTROZOLE
  9. BENZONATATE [Concomitant]
     Active Substance: BENZONATATE
  10. CITALOPRAM [Concomitant]
     Active Substance: CITALOPRAM
  11. CYCLOBENZAPRINE [Concomitant]
     Active Substance: CYCLOBENZAPRINE
  12. FENOFIBRATE [Concomitant]
     Active Substance: FENOFIBRATE
  13. IRBESARTAN [Concomitant]
     Active Substance: IRBESARTAN
  14. LETROZOLE [Concomitant]
     Active Substance: LETROZOLE
  15. PREDNISONE [Concomitant]
     Active Substance: PREDNISONE
  16. VERZENIO [Concomitant]
     Active Substance: ABEMACICLIB
  17. VERZENIO [Concomitant]
     Active Substance: ABEMACICLIB
  18. ZOLPIDEM TARTRATE [Concomitant]
     Active Substance: ZOLPIDEM TARTRATE
  19. ZOLPIDEM TARTRATE [Concomitant]
     Active Substance: ZOLPIDEM TARTRATE
  20. CETIRIZINE [Concomitant]
     Active Substance: CETIRIZINE HYDROCHLORIDE
  21. LORATADINE [Concomitant]
     Active Substance: LORATADINE
  22. ONDANSETRON [Concomitant]
     Active Substance: ONDANSETRON
  23. ZOLEDRONIC [Concomitant]
     Active Substance: ZOLEDRONIC ACID
  24. PILOCARPINE [Concomitant]
     Active Substance: PILOCARPINE
  25. CELECOXIB [Concomitant]
     Active Substance: CELECOXIB
  26. ELIQUIS [Concomitant]
     Active Substance: APIXABAN
  27. VITAMIN D3 [Concomitant]
     Active Substance: CHOLECALCIFEROL
  28. ZOLPIDEM [Concomitant]
     Active Substance: ZOLPIDEM TARTRATE

REACTIONS (8)
  - Lower respiratory tract infection [Unknown]
  - Pancytopenia [Unknown]
  - Pyrexia [Not Recovered/Not Resolved]
  - White blood cell count decreased [Recovering/Resolving]
  - Illness [Unknown]
  - Fatigue [Unknown]
  - Sleep disorder [Unknown]
  - Product dose omission in error [Unknown]
